FAERS Safety Report 20326819 (Version 3)
Quarter: 2022Q1

REPORT INFORMATION
  Report Type: Spontaneous
  Country: US (occurrence: US)
  Receive Date: 20220112
  Receipt Date: 20220216
  Transmission Date: 20220423
  Serious: No
  Sender: FDA-Public Use
  Company Number: US-GSKCCFUS-Case-01257874_AE-73634

PATIENT
  Sex: Male

DRUGS (1)
  1. TRELEGY ELLIPTA [Suspect]
     Active Substance: FLUTICASONE FUROATE\UMECLIDINIUM BROMIDE\VILANTEROL TRIFENATATE
     Indication: Product used for unknown indication
     Dosage: 1 PUFF(S), 1D 200/62.5/25
     Route: 055
     Dates: start: 2021

REACTIONS (4)
  - Dyspnoea [Unknown]
  - Oxygen saturation decreased [Unknown]
  - Drug ineffective [Unknown]
  - Product complaint [Unknown]
